FAERS Safety Report 15681195 (Version 3)
Quarter: 2018Q4

REPORT INFORMATION
  Report Type: Spontaneous
  Country: US (occurrence: US)
  Receive Date: 20181203
  Receipt Date: 20181209
  Transmission Date: 20190205
  Serious: Yes (Other)
  Sender: FDA-Public Use
  Company Number: US-TEVA-2018-US-978683

PATIENT
  Age: 74 Year
  Sex: Female

DRUGS (1)
  1. VALSARTAN AND HYDROCHLOROTHIAZIDE [Suspect]
     Active Substance: HYDROCHLOROTHIAZIDE\VALSARTAN
     Indication: BLOOD PRESSURE MEASUREMENT
     Dosage: VALSARTAN 160 UNKNOWN UNITS + HYDROCHLOROTHIAZIDE 12.5 (UNKNOWN UNITS)?USED 10 MONTHS AGO
     Route: 065

REACTIONS (2)
  - Gastrointestinal haemorrhage [Unknown]
  - Diverticulitis [Unknown]
